FAERS Safety Report 13492346 (Version 1)
Quarter: 2017Q2

REPORT INFORMATION
  Report Type: Spontaneous
  Country: US (occurrence: US)
  Receive Date: 20170427
  Receipt Date: 20170427
  Transmission Date: 20170830
  Serious: No
  Sender: FDA-Public Use
  Company Number: US-PFIZER INC-2017180805

PATIENT
  Age: 84 Year
  Sex: Male
  Weight: 85 kg

DRUGS (3)
  1. FINASTERIDE. [Concomitant]
     Active Substance: FINASTERIDE
     Indication: PROSTATE CANCER
     Dosage: 5 MG, 1X/DAY
     Route: 048
  2. CAVERJECT IMPULSE [Suspect]
     Active Substance: ALPROSTADIL
     Indication: ERECTILE DYSFUNCTION
     Dosage: 20 MG, UNK, ^BY INJECTION IN THE PENIS^
     Dates: start: 20170421
  3. ELIQUIS [Concomitant]
     Active Substance: APIXABAN
     Indication: ANTICOAGULANT THERAPY
     Dosage: UNK UNK, 2X/DAY, ^ONE IN THE MORNING AND ONE IN THE EVENING^

REACTIONS (1)
  - Penile oedema [Recovering/Resolving]

NARRATIVE: CASE EVENT DATE: 20170421
